FAERS Safety Report 4953104-9 (Version None)
Quarter: 2006Q1

REPORT INFORMATION
  Report Type: 
  Country: None (occurrence: None)
  Receive Date: 20060321
  Receipt Date: 20060306
  Transmission Date: 20060701
  Serious: Yes (Death)
  Sender: FDA-Public Use
  Company Number: 2006-BP-02566RO

PATIENT
  Age: 22 Year
  Sex: Female

DRUGS (1)
  1. CITALOPRAM (CITALOPRAM) [Suspect]
     Indication: DEPRESSION
     Dosage: 20 MG (20 MG), PO
     Route: 048

REACTIONS (5)
  - BRAIN OEDEMA [None]
  - COMPLETED SUICIDE [None]
  - DRUG ABUSER [None]
  - DRUG LEVEL INCREASED [None]
  - PULMONARY OEDEMA [None]
